FAERS Safety Report 24761015 (Version 3)
Quarter: 2025Q3

REPORT INFORMATION
  Report Type: Report from Study
  Country: JP (occurrence: JP)
  Receive Date: 20241220
  Receipt Date: 20250810
  Transmission Date: 20251020
  Serious: Yes (Hospitalization, Other)
  Sender: ALEXION PHARMACEUTICALS
  Company Number: JP-ASTRAZENECA-240141666_032420_P_1

PATIENT
  Age: 84 Year
  Sex: Female
  Weight: 39 kg

DRUGS (9)
  1. TEZEPELUMAB [Suspect]
     Active Substance: TEZEPELUMAB
     Indication: Asthma
     Dates: start: 20231128, end: 20240813
  2. TEZEPELUMAB [Suspect]
     Active Substance: TEZEPELUMAB
  3. BUDESONIDE\FORMOTEROL [Concomitant]
     Active Substance: BUDESONIDE\FORMOTEROL
  4. PRANLUKAST [Concomitant]
     Active Substance: PRANLUKAST
     Indication: Asthma
  5. PRANLUKAST [Concomitant]
     Active Substance: PRANLUKAST
  6. SPIRIVA [Concomitant]
     Active Substance: TIOTROPIUM BROMIDE MONOHYDRATE
  7. SPIRIVA [Concomitant]
     Active Substance: TIOTROPIUM BROMIDE MONOHYDRATE
  8. TELMISARTAN [Concomitant]
     Active Substance: TELMISARTAN
     Indication: Hypertension
  9. TELMISARTAN [Concomitant]
     Active Substance: TELMISARTAN

REACTIONS (2)
  - Pneumonia [Unknown]
  - Off label use [Unknown]
